FAERS Safety Report 4349742-7 (Version None)
Quarter: 2004Q2

REPORT INFORMATION
  Report Type: 
  Country: None (occurrence: None)
  Receive Date: 20040426
  Receipt Date: 20040408
  Transmission Date: 20050107
  Serious: Yes (Hospitalization)
  Sender: FDA-Public Use
  Company Number: 7844

PATIENT
  Age: 49 Year
  Sex: Female

DRUGS (4)
  1. METHOTREXATE [Suspect]
     Indication: RHEUMATOID ARTHRITIS
     Dosage: 20 MG WEKLY SC
     Route: 058
     Dates: start: 20020206, end: 20040119
  2. ENBREL [Suspect]
     Indication: RHEUMATOID ARTHRITIS
     Dosage: 25 MG 2/WK, SC
     Route: 058
     Dates: start: 20031218, end: 20040119
  3. PREDNISONE [Suspect]
     Dosage: 20 MG DAILY PO
     Route: 048
     Dates: start: 20020206
  4. FOLIC ACID [Concomitant]

REACTIONS (6)
  - APPENDICITIS PERFORATED [None]
  - CULTURE URINE POSITIVE [None]
  - DYSURIA [None]
  - LOOSE STOOLS [None]
  - POTASSIUM HYDROXIDE PREPARATION POSITIVE [None]
  - TRICHOMONIASIS [None]
